FAERS Safety Report 21036002 (Version 1)
Quarter: 2022Q3

REPORT INFORMATION
  Report Type: Spontaneous
  Country: US (occurrence: US)
  Receive Date: 20220701
  Receipt Date: 20220701
  Transmission Date: 20221027
  Serious: No
  Sender: FDA-Public Use
  Company Number: US-KRAMERLABS-2021-US-016105

PATIENT
  Sex: Female

DRUGS (1)
  1. NIZORAL A-D [Suspect]
     Active Substance: KETOCONAZOLE
     Indication: Product used for unknown indication
     Dosage: USED 3 TIMES
     Route: 061
     Dates: start: 202105

REACTIONS (11)
  - Rash [Not Recovered/Not Resolved]
  - Urticaria [Not Recovered/Not Resolved]
  - Dermatitis contact [Unknown]
  - Dermatitis allergic [Unknown]
  - Urticaria [Unknown]
  - Pruritus [Unknown]
  - Skin burning sensation [Unknown]
  - Swelling [Unknown]
  - Pain [Unknown]
  - Pharyngeal swelling [Unknown]
  - Swollen tongue [Unknown]

NARRATIVE: CASE EVENT DATE: 20210501
